FAERS Safety Report 15624731 (Version 1)
Quarter: 2018Q4

REPORT INFORMATION
  Report Type: Report from Study
  Country: JP (occurrence: JP)
  Receive Date: 20181116
  Receipt Date: 20181116
  Transmission Date: 20190205
  Serious: Yes (Hospitalization)
  Sender: FDA-Public Use
  Company Number: JP-ASTRAZENECA-2018SF44185

PATIENT
  Age: 78 Year
  Sex: Male
  Weight: 51.5 kg

DRUGS (15)
  1. AZ COMBINATION FINE GRANULES FOR GARGLE [Concomitant]
     Indication: STOMATITIS
     Dates: start: 20180903
  2. XYLOCAINE [Concomitant]
     Active Substance: LIDOCAINE HYDROCHLORIDE
     Indication: STOMATITIS
     Dosage: SEVERAL TIMES A DAY
     Dates: start: 20180903
  3. RANMARK [Concomitant]
     Active Substance: DENOSUMAB
     Indication: METASTASES TO BONE
     Dosage: 1 VIAL ONCE EVERY 4 WEEKS
     Route: 058
  4. BEVACIZUMAB. [Suspect]
     Active Substance: BEVACIZUMAB
     Indication: NON-SMALL CELL LUNG CANCER
     Route: 041
     Dates: start: 20180830
  5. ASPARA-CA [Concomitant]
     Active Substance: CALCIUM ASPARTATE
     Indication: HYPOCALCAEMIA
     Route: 048
  6. TSUMURA HANGESHASHINTO [Concomitant]
     Active Substance: HERBALS
     Indication: STOMATITIS
     Route: 048
     Dates: start: 20180904
  7. AZOSEMIDE [Concomitant]
     Active Substance: AZOSEMIDE
     Indication: HYPERTENSION
     Route: 048
  8. TAGRISSO [Suspect]
     Active Substance: OSIMERTINIB
     Indication: NON-SMALL CELL LUNG CANCER
     Route: 048
     Dates: start: 20180830, end: 20181014
  9. URIEF OD [Concomitant]
     Indication: BENIGN PROSTATIC HYPERPLASIA
     Route: 048
  10. NEXIUM [Concomitant]
     Active Substance: ESOMEPRAZOLE MAGNESIUM
     Indication: GASTRIC PH INCREASED
     Route: 048
  11. CALFINA [Concomitant]
     Active Substance: ALFACALCIDOL
     Indication: HYPOCALCAEMIA
     Route: 048
  12. TRAMAL OD [Concomitant]
     Active Substance: TRAMADOL
     Indication: PAIN
     Dosage: 25 MG
     Route: 048
  13. CELECOX [Concomitant]
     Active Substance: CELECOXIB
     Indication: PAIN
     Route: 048
  14. ONETRAM [Concomitant]
     Active Substance: TRAMADOL HYDROCHLORIDE
     Indication: PAIN
     Route: 048
  15. ARASENA-A [Concomitant]
     Active Substance: VIDARABINE
     Indication: LIP INFECTION
     Dosage: SEVERAL TIMES A DAY
     Route: 061
     Dates: start: 20181011

REACTIONS (1)
  - Pleurisy [Recovering/Resolving]

NARRATIVE: CASE EVENT DATE: 20181014
